FAERS Safety Report 8265962-3 (Version None)
Quarter: 2012Q2

REPORT INFORMATION
  Report Type: 
  Country: None (occurrence: None)
  Receive Date: 20120403
  Receipt Date: 20120319
  Transmission Date: 20120825
  Serious: Yes (Other)
  Sender: FDA-Public Use
  Company Number: 2012MA003610

PATIENT
  Age: 40 Year
  Sex: Female

DRUGS (1)
  1. ACETAMINOPHEN AND CODEINE PHOSPHATE [Suspect]
     Indication: HEADACHE
     Dosage: RTL
     Route: 054

REACTIONS (4)
  - CONSTIPATION [None]
  - PROCTALGIA [None]
  - RECTAL ULCER [None]
  - RECTAL HAEMORRHAGE [None]
